FAERS Safety Report 5507644-4 (Version None)
Quarter: 2007Q4

REPORT INFORMATION
  Report Type: 
  Country: None (occurrence: None)
  Receive Date: 20071105
  Receipt Date: 20071105
  Transmission Date: 20080405
  Serious: No
  Sender: FDA-Public Use
  Company Number: None

PATIENT
  Age: 39 Year
  Sex: Female

DRUGS (1)
  1. OMNIPAQUE    200 [Suspect]
     Indication: LUNG NEOPLASM MALIGNANT
     Dosage: 100 CC  ONE TIME  IV
     Route: 042
     Dates: start: 20071026, end: 20071026

REACTIONS (1)
  - HYPERSENSITIVITY [None]
